FAERS Safety Report 8566131-X (Version None)
Quarter: 2012Q3

REPORT INFORMATION
  Report Type: 
  Country: None (occurrence: None)
  Receive Date: 20120803
  Receipt Date: 20111227
  Transmission Date: 20120928
  Serious: No
  Sender: FDA-Public Use
  Company Number: US-ABBOTT-11P-163-0887042-00

PATIENT
  Sex: Male
  Weight: 104.42 kg

DRUGS (3)
  1. BENICAR [Concomitant]
     Indication: HYPERTENSION
  2. INHALERS [Concomitant]
     Indication: ASTHMA
  3. NIASPAN [Suspect]
     Indication: BLOOD CHOLESTEROL INCREASED

REACTIONS (3)
  - FEELING HOT [None]
  - FLUSHING [None]
  - PARAESTHESIA [None]
